FAERS Safety Report 7867340-5 (Version None)
Quarter: 2011Q4

REPORT INFORMATION
  Report Type: 
  Country: None (occurrence: None)
  Receive Date: 20111028
  Receipt Date: 20111018
  Transmission Date: 20120403
  Serious: Yes (Other)
  Sender: FDA-Public Use
  Company Number: US-BRISTOL-MYERS SQUIBB COMPANY-16175739

PATIENT
  Age: 76 Year
  Sex: Male

DRUGS (1)
  1. ONGLYZA [Suspect]

REACTIONS (1)
  - RENAL FAILURE [None]
